FAERS Safety Report 18544235 (Version 2)
Quarter: 2020Q4

REPORT INFORMATION
  Report Type: Spontaneous
  Country: DK (occurrence: DK)
  Receive Date: 20201125
  Receipt Date: 20201223
  Transmission Date: 20210114
  Serious: Yes (Death, Other)
  Sender: FDA-Public Use
  Company Number: DK-AMGEN-DNKSP2020189129

PATIENT

DRUGS (1)
  1. ARANESP [Suspect]
     Active Substance: DARBEPOETIN ALFA
     Indication: ANAEMIA
     Dosage: 300 PICOGRAM, QWK
     Route: 058

REACTIONS (7)
  - Bone pain [Unknown]
  - Myalgia [Unknown]
  - Gastrointestinal disorder [Unknown]
  - Therapy non-responder [Unknown]
  - Acute myeloid leukaemia [Unknown]
  - Therapy partial responder [Unknown]
  - Death [Fatal]
